FAERS Safety Report 22385121 (Version 1)
Quarter: 2023Q2

REPORT INFORMATION
  Report Type: Spontaneous
  Country: CN (occurrence: CN)
  Receive Date: 20230530
  Receipt Date: 20230530
  Transmission Date: 20230722
  Serious: Yes (Other)
  Sender: FDA-Public Use
  Company Number: None

PATIENT
  Age: 8 Year
  Sex: Female

DRUGS (4)
  1. MANNITOL [Suspect]
     Active Substance: MANNITOL
     Indication: Reduction of increased intracranial pressure
     Dosage: 60 ML TWICE DAILY, DOSAGE FORM: INJECTION
     Route: 041
     Dates: start: 20230516, end: 20230520
  2. MANNITOL [Suspect]
     Active Substance: MANNITOL
     Indication: Headache
  3. MANNITOL [Suspect]
     Active Substance: MANNITOL
     Indication: Dizziness
  4. CEFTRIAXONE [Suspect]
     Active Substance: CEFTRIAXONE
     Dosage: UNK
     Route: 065
     Dates: end: 20230520

REACTIONS (11)
  - Cold sweat [Recovering/Resolving]
  - Anaesthesia [Recovered/Resolved]
  - Abdominal pain upper [Recovering/Resolving]
  - Depressed mood [Unknown]
  - Pallor [Recovering/Resolving]
  - Productive cough [Unknown]
  - Pruritus [Recovered/Resolved]
  - Dyspnoea [Recovering/Resolving]
  - Vomiting [Recovered/Resolved]
  - Dry mouth [Recovered/Resolved]
  - Dizziness [Recovering/Resolving]

NARRATIVE: CASE EVENT DATE: 20230520
